FAERS Safety Report 13454433 (Version 1)
Quarter: 2017Q2

REPORT INFORMATION
  Report Type: Spontaneous
  Country: US (occurrence: US)
  Receive Date: 20170418
  Receipt Date: 20170418
  Transmission Date: 20170830
  Serious: No
  Sender: FDA-Public Use
  Company Number: US-ALLERGAN-1703717US

PATIENT
  Age: 66 Year
  Sex: Female
  Weight: 77.55 kg

DRUGS (2)
  1. LUMIGAN [Suspect]
     Active Substance: BIMATOPROST
     Indication: GLAUCOMA
  2. LUMIGAN [Suspect]
     Active Substance: BIMATOPROST
     Indication: INTRAOCULAR PRESSURE INCREASED
     Dosage: 2 GTT, NIGHTLY
     Route: 047
     Dates: start: 20161019, end: 20170206

REACTIONS (5)
  - Ocular hyperaemia [Not Recovered/Not Resolved]
  - Macular degeneration [Unknown]
  - Eye discharge [Not Recovered/Not Resolved]
  - Conjunctivitis [Unknown]
  - Eye irritation [Not Recovered/Not Resolved]

NARRATIVE: CASE EVENT DATE: 201611
